FAERS Safety Report 9986076 (Version 3)
Quarter: 2014Q2

REPORT INFORMATION
  Report Type: Report from Study
  Country: US (occurrence: US)
  Receive Date: 20140307
  Receipt Date: 20140605
  Transmission Date: 20141212
  Serious: Yes (Hospitalization)
  Sender: FDA-Public Use
  Company Number: US-SA-2014SA024067

PATIENT
  Age: 58 Year
  Sex: Male
  Weight: 79.06 kg

DRUGS (10)
  1. PLERIXAFOR [Suspect]
     Indication: GLIOBLASTOMA
     Dosage: 21 OF 28 DAYS
     Route: 065
     Dates: start: 20140127, end: 20140216
  2. BEVACIZUMAB [Suspect]
     Indication: GLIOBLASTOMA
     Route: 065
     Dates: start: 20140127, end: 20140210
  3. ACETYLSALICYLIC ACID [Concomitant]
  4. CLARITIN [Concomitant]
  5. HYDROCHLOROTHIAZIDE [Concomitant]
  6. KEPPRA [Concomitant]
  7. LEVETIRACETAM [Concomitant]
  8. MELATONIN [Concomitant]
  9. NYSTATIN [Concomitant]
     Dosage: DOSE:500000 UNIT(S)
  10. SIMVASTATIN [Concomitant]

REACTIONS (1)
  - Aphasia [Unknown]
